FAERS Safety Report 5102232-6 (Version None)
Quarter: 2006Q3

REPORT INFORMATION
  Report Type: 
  Country: None (occurrence: None)
  Receive Date: 20060912
  Receipt Date: 20060905
  Transmission Date: 20061208
  Serious: Yes (Death, Hospitalization)
  Sender: FDA-Public Use
  Company Number: US-JNJFOC-20060901713

PATIENT
  Age: 41 Year
  Sex: Female

DRUGS (5)
  1. ACETAMINOPHEN [Suspect]
     Route: 048
  2. ACETAMINOPHEN [Suspect]
     Indication: DRUG USE FOR UNKNOWN INDICATION
     Route: 048
  3. ASPIRIN [Suspect]
     Indication: DRUG USE FOR UNKNOWN INDICATION
  4. ALCOHOL [Suspect]
     Indication: DRUG USE FOR UNKNOWN INDICATION
     Route: 048
  5. SOMA [Suspect]
     Indication: DRUG USE FOR UNKNOWN INDICATION

REACTIONS (7)
  - BLOOD LACTIC ACID INCREASED [None]
  - GASTRITIS [None]
  - HEPATIC FAILURE [None]
  - LEUKOCYTOSIS [None]
  - MULTIPLE DRUG OVERDOSE INTENTIONAL [None]
  - RENAL FAILURE [None]
  - TROPONIN INCREASED [None]
